FAERS Safety Report 5577820-3 (Version None)
Quarter: 2007Q4

REPORT INFORMATION
  Report Type: 
  Country: None (occurrence: None)
  Receive Date: 20071130
  Receipt Date: 20070718
  Transmission Date: 20080405
  Serious: No
  Sender: FDA-Public Use
  Company Number: US200707004734

PATIENT
  Age: 53 Year
  Sex: Male

DRUGS (5)
  1. BYETTA [Suspect]
     Indication: TYPE 2 DIABETES MELLITUS
     Dosage: 10 UG, 2/D SUBCUTANEOUS
     Route: 058
     Dates: start: 20050101, end: 20070501
  2. BYETTA [Suspect]
     Indication: TYPE 2 DIABETES MELLITUS
     Dosage: 10 UG, 2/D SUBCUTANEOUS
     Route: 058
     Dates: start: 20070716
  3. METFORMIN HCL [Concomitant]
  4. DRUG USED IN DIABETES [Concomitant]
  5. PROTONOX (PANTOPRAZOLE) [Concomitant]

REACTIONS (2)
  - MALAISE [None]
  - NAUSEA [None]
